FAERS Safety Report 4444182-4 (Version None)
Quarter: 2004Q3

REPORT INFORMATION
  Report Type: 
  Country: None (occurrence: None)
  Receive Date: 20040902
  Receipt Date: 20040819
  Transmission Date: 20050211
  Serious: Yes (Other)
  Sender: FDA-Public Use
  Company Number: EM2004-0408

PATIENT
  Sex: Male
  Weight: 87.1 kg

DRUGS (1)
  1. PROLEUKIN [Suspect]

REACTIONS (1)
  - INTERSTITIAL LUNG DISEASE [None]
